FAERS Safety Report 9432831 (Version 2)
Quarter: 2013Q4

REPORT INFORMATION
  Report Type: Spontaneous
  Country: GB (occurrence: GB)
  Receive Date: 20130731
  Receipt Date: 20131022
  Transmission Date: 20140711
  Serious: Yes (Hospitalization, Other)
  Sender: FDA-Public Use
  Company Number: GB-B.I. PHARMACEUTICALS,INC./RIDGEFIELD-2013-UK-01480UK

PATIENT
  Sex: Male

DRUGS (11)
  1. TRAJENTA [Suspect]
     Indication: TYPE 2 DIABETES MELLITUS
     Dosage: 1 ANZ
     Dates: start: 201306, end: 20130726
  2. AN ANTIBIOTIC [Concomitant]
  3. FLUOXETINE [Concomitant]
  4. CALICHEW [Concomitant]
  5. MEMANTINE [Concomitant]
  6. ASPIRIN [Concomitant]
  7. BISOPROLOL [Concomitant]
  8. ATORVASTATIN [Concomitant]
  9. ALENDENIC ACID [Concomitant]
  10. LISINOPRIL [Concomitant]
  11. RISPERIDONE [Concomitant]

REACTIONS (4)
  - Liver function test abnormal [Unknown]
  - Gamma-glutamyltransferase increased [Unknown]
  - Blood alkaline phosphatase increased [Unknown]
  - Lower respiratory tract infection [Unknown]
